FAERS Safety Report 6124198-2 (Version None)
Quarter: 2009Q1

REPORT INFORMATION
  Report Type: 
  Country: None (occurrence: None)
  Receive Date: 20090317
  Receipt Date: 20090306
  Transmission Date: 20090719
  Serious: No
  Sender: FDA-Public Use
  Company Number: 20096369

PATIENT
  Age: 24 Year
  Sex: Female

DRUGS (1)
  1. LIORESAL [Suspect]
     Indication: MUSCLE SPASTICITY
     Dosage: 500 MCG, DAILY, INTRATHECAL
     Route: 037

REACTIONS (5)
  - ABDOMINAL WALL INFECTION [None]
  - ERYTHEMA [None]
  - IMPLANT SITE EROSION [None]
  - PYREXIA [None]
  - SECRETION DISCHARGE [None]
